FAERS Safety Report 5443837-2 (Version None)
Quarter: 2007Q3

REPORT INFORMATION
  Report Type: 
  Country: None (occurrence: None)
  Receive Date: 20070905
  Receipt Date: 20070824
  Transmission Date: 20080115
  Serious: Yes (Other)
  Sender: FDA-Public Use
  Company Number: US-PFIZER INC-2007071348

PATIENT
  Sex: Female

DRUGS (2)
  1. LYRICA [Suspect]
     Indication: FIBROMYALGIA
     Dates: start: 20070724, end: 20070805
  2. MORPHINE SULFATE [Concomitant]

REACTIONS (11)
  - ALLODYNIA [None]
  - DISSOCIATION [None]
  - DIZZINESS [None]
  - DYSKINESIA [None]
  - DYSURIA [None]
  - FEELING ABNORMAL [None]
  - HYPOTENSION [None]
  - MUSCULAR WEAKNESS [None]
  - MUSCULOSKELETAL STIFFNESS [None]
  - SCREAMING [None]
  - SOMNOLENCE [None]
